FAERS Safety Report 5752542-4 (Version None)
Quarter: 2008Q2

REPORT INFORMATION
  Report Type: 
  Country: None (occurrence: None)
  Receive Date: 20080529
  Receipt Date: 20080520
  Transmission Date: 20081010
  Serious: Yes (Other)
  Sender: FDA-Public Use
  Company Number: PHHY2008GR08339

PATIENT
  Sex: Female

DRUGS (4)
  1. FEMARA [Suspect]
     Route: 048
     Dates: start: 20041001
  2. PONSTAN [Concomitant]
  3. MEDROL [Concomitant]
     Indication: HYPERSENSITIVITY
  4. LIPITOR [Concomitant]
     Dosage: TWO OR THREE TIMES A WEEK

REACTIONS (8)
  - CHORIORETINITIS [None]
  - CHORIORETINOPATHY [None]
  - DETACHMENT OF RETINAL PIGMENT EPITHELIUM [None]
  - EYE OEDEMA [None]
  - HYPERSENSITIVITY [None]
  - MASTECTOMY [None]
  - POSTERIOR CAPSULE OPACIFICATION [None]
  - VISION BLURRED [None]
